FAERS Safety Report 15666215 (Version 7)
Quarter: 2024Q1

REPORT INFORMATION
  Report Type: Spontaneous
  Country: FR (occurrence: FR)
  Receive Date: 20181128
  Receipt Date: 20240208
  Transmission Date: 20240410
  Serious: Yes (Death, Life-Threatening, Hospitalization, Other)
  Sender: FDA-Public Use
  Company Number: FR-PFIZER INC-2018487566

PATIENT
  Age: 58 Year
  Sex: Male
  Weight: 84 kg

DRUGS (3)
  1. FLUOROURACIL [Suspect]
     Active Substance: FLUOROURACIL
     Indication: Linitis plastica
     Dosage: UNK UNK, CYCLIC (DAY 8 OF CYCLE 1)
     Dates: start: 20171031
  2. OXALIPLATIN [Suspect]
     Active Substance: OXALIPLATIN
     Indication: Linitis plastica
     Dosage: UNK UNK, CYCLIC (DAY 8 OF CYCLE 1)
     Dates: start: 20171031
  3. LEUCOVORIN CALCIUM [Suspect]
     Active Substance: LEUCOVORIN CALCIUM
     Indication: Linitis plastica
     Dosage: UNK UNK, CYCLIC (DAY 8 OF CYCLE 1)
     Dates: start: 20171031

REACTIONS (2)
  - Septic shock [Fatal]
  - Febrile neutropenia [Fatal]
